FAERS Safety Report 10621318 (Version 2)
Quarter: 2014Q4

REPORT INFORMATION
  Report Type: Spontaneous
  Country: DE (occurrence: DE)
  Receive Date: 20141203
  Receipt Date: 20141216
  Transmission Date: 20150529
  Serious: Yes (Hospitalization, Other)
  Sender: FDA-Public Use
  Company Number: DE-AUROBINDO-AUR-APL-2014-12568

PATIENT
  Age: 41 Year
  Sex: Female

DRUGS (3)
  1. VALPROIC ACID. [Suspect]
     Active Substance: VALPROIC ACID
     Indication: PRODUCT USED FOR UNKNOWN INDICATION
     Dosage: UNK
     Route: 065
  2. MIRTAZAPINE. [Suspect]
     Active Substance: MIRTAZAPINE
     Indication: PRODUCT USED FOR UNKNOWN INDICATION
     Dosage: UNK
     Route: 065
  3. DIPYRONE [Suspect]
     Active Substance: DIPYRONE
     Indication: PRODUCT USED FOR UNKNOWN INDICATION
     Dosage: UNK
     Route: 065

REACTIONS (35)
  - Hypoaesthesia [Unknown]
  - Tracheostomy malfunction [Unknown]
  - Hypotension [Unknown]
  - Tachycardia [Unknown]
  - Abdominal pain [Unknown]
  - Poor quality sleep [Unknown]
  - Electromyogram abnormal [Unknown]
  - Cardiac arrest [Unknown]
  - Asthenia [Unknown]
  - Pain [Unknown]
  - Blood bilirubin increased [Unknown]
  - Blood potassium decreased [Unknown]
  - Colonoscopy abnormal [Unknown]
  - Neurone-specific enolase increased [Unknown]
  - Weight decreased [Recovering/Resolving]
  - Abasia [Unknown]
  - Quadriplegia [Unknown]
  - Muscle atrophy [Unknown]
  - Blood sodium decreased [Unknown]
  - Quadriparesis [Unknown]
  - Central nervous system lesion [Unknown]
  - Motor dysfunction [Not Recovered/Not Resolved]
  - Device occlusion [Unknown]
  - Chromaturia [Unknown]
  - Cognitive disorder [Unknown]
  - Vomiting [Unknown]
  - Porphyria acute [Not Recovered/Not Resolved]
  - Encephalopathy [Unknown]
  - Clostridium difficile colitis [Unknown]
  - Areflexia [Unknown]
  - Seizure [Unknown]
  - Anxiety [Unknown]
  - Pyrexia [Unknown]
  - Constipation [Unknown]
  - Porphyrins urine increased [Unknown]
